FAERS Safety Report 6692527-7 (Version None)
Quarter: 2010Q2

REPORT INFORMATION
  Report Type: 
  Country: None (occurrence: None)
  Receive Date: 20100422
  Receipt Date: 20100414
  Transmission Date: 20101027
  Serious: Yes (Life-Threatening)
  Sender: FDA-Public Use
  Company Number: B0648955A

PATIENT
  Age: 6 Year
  Sex: Female

DRUGS (1)
  1. CEFTAZIDINE [Suspect]
     Indication: PNEUMONIA

REACTIONS (2)
  - DYSPNOEA [None]
  - LARYNGEAL OEDEMA [None]
